FAERS Safety Report 19678067 (Version 1)
Quarter: 2021Q3

REPORT INFORMATION
  Report Type: Spontaneous
  Country: JP (occurrence: JP)
  Receive Date: 20210810
  Receipt Date: 20210810
  Transmission Date: 20211014
  Serious: Yes (Other)
  Sender: FDA-Public Use
  Company Number: JP-ASPEN-GLO2021JP006395

PATIENT

DRUGS (2)
  1. DECADRON [Suspect]
     Active Substance: DEXAMETHASONE
     Indication: ACUTE MYELOID LEUKAEMIA REFRACTORY
     Dosage: 40 MG/DAY, DAYS 1, 8, 15, AND 22
     Route: 065
     Dates: start: 201906
  2. IXAZOMIB [Suspect]
     Active Substance: IXAZOMIB
     Indication: ACUTE MYELOID LEUKAEMIA REFRACTORY
     Dosage: 3 MG/DAY, DAYS 1, 8, AND 15
     Route: 065
     Dates: start: 201906

REACTIONS (1)
  - Haematotoxicity [Unknown]

NARRATIVE: CASE EVENT DATE: 2019
